FAERS Safety Report 6590537-1 (Version None)
Quarter: 2010Q1

REPORT INFORMATION
  Report Type: 
  Country: None (occurrence: None)
  Receive Date: 20100219
  Receipt Date: 20100208
  Transmission Date: 20100710
  Serious: Yes (Hospitalization)
  Sender: FDA-Public Use
  Company Number: FR-PFIZER INC-2009287468

PATIENT

DRUGS (1)
  1. ZITHROMAX [Suspect]
     Dosage: 2 DF PER DAYS FOR 10 DAYS

REACTIONS (2)
  - DRUG PRESCRIBING ERROR [None]
  - RESPIRATORY FAILURE [None]
